FAERS Safety Report 4513215-9 (Version None)
Quarter: 2004Q4

REPORT INFORMATION
  Report Type: 
  Country: None (occurrence: None)
  Receive Date: 20041124
  Receipt Date: 20041111
  Transmission Date: 20050328
  Serious: Yes (Other)
  Sender: FDA-Public Use
  Company Number: HQ2979325JUN2002

PATIENT
  Age: 55 Year
  Sex: Female

DRUGS (8)
  1. SIROLIMUS (SIROLIMUS, TABLET) [Suspect]
     Indication: PROPHYLAXIS AGAINST TRANSPLANT REJECTION
     Dosage: ORAL
     Route: 048
     Dates: start: 19980909, end: 20030904
  2. PREDNISOLONE [Suspect]
     Indication: IMMUNOSUPPRESSANT DRUG THERAPY
     Dosage: 5 MG 1X PER 1 DAY, ORAL
     Route: 048
     Dates: start: 20001212
  3. LASIX RETARD 9FUROSEMIDE) [Concomitant]
  4. ASPIRIN [Concomitant]
  5. ETALPHA (ALFACALCIDOL) [Concomitant]
  6. KALIUM DURETTER (POTASSIUM CHLORIDE) [Concomitant]
  7. NITROMEX (GLYCERYL TRINITRATE) [Concomitant]
  8. LEVAXIN (LEVOTHYROXINE SODIUM) [Concomitant]

REACTIONS (2)
  - BREAST CANCER FEMALE [None]
  - IMMUNOSUPPRESSION [None]
